FAERS Safety Report 25700476 (Version 4)
Quarter: 2025Q4

REPORT INFORMATION
  Report Type: Spontaneous
  Country: US (occurrence: US)
  Receive Date: 20250819
  Receipt Date: 20251022
  Transmission Date: 20260118
  Serious: No
  Sender: PFIZER
  Company Number: US-PFIZER INC-PV202500099135

PATIENT
  Age: 44 Year
  Sex: Male
  Weight: 75.737 kg

DRUGS (1)
  1. BICILLIN L-A [Suspect]
     Active Substance: PENICILLIN G BENZATHINE
     Indication: Pharyngitis streptococcal
     Dosage: ONE TIME DOSE
     Route: 030
     Dates: start: 20250117

REACTIONS (1)
  - Recalled product administered [Unknown]
